FAERS Safety Report 8479898-6 (Version None)
Quarter: 2012Q2

REPORT INFORMATION
  Report Type: 
  Country: None (occurrence: None)
  Receive Date: 20120629
  Receipt Date: 20120620
  Transmission Date: 20120825
  Serious: Yes (Hospitalization)
  Sender: FDA-Public Use
  Company Number: US-ABBOTT-12P-163-0948259-00

PATIENT
  Age: 61 Year
  Sex: Female

DRUGS (5)
  1. CIMZIA [Suspect]
     Indication: PSORIATIC ARTHROPATHY
     Dates: start: 20110601, end: 20111201
  2. HUMIRA [Suspect]
     Dosage: USE WHEN IF IN CASE SHE STARTS HAVING FLARE UP OF HER SYMPTOMS
  3. UNKNOWN MEDICATIONS [Concomitant]
     Indication: PRODUCT USED FOR UNKNOWN INDICATION
  4. HUMIRA [Suspect]
     Dates: start: 20111201, end: 20120401
  5. HUMIRA [Suspect]
     Indication: PSORIATIC ARTHROPATHY
     Dates: start: 20080101, end: 20110601

REACTIONS (14)
  - OSTEOPENIA [None]
  - HYSTERECTOMY [None]
  - DRUG INEFFECTIVE [None]
  - SCAB [None]
  - BONE DENSITY DECREASED [None]
  - HIATUS HERNIA [None]
  - PANCREATITIS [None]
  - PSORIATIC ARTHROPATHY [None]
  - ARTHRALGIA [None]
  - PAIN [None]
  - PSORIASIS [None]
  - CHOLECYSTECTOMY [None]
  - VARICES OESOPHAGEAL [None]
  - RASH MACULAR [None]
